FAERS Safety Report 4725264-6 (Version None)
Quarter: 2005Q3

REPORT INFORMATION
  Report Type: 
  Country: None (occurrence: None)
  Receive Date: 20050725
  Receipt Date: 20050707
  Transmission Date: 20060218
  Serious: No
  Sender: FDA-Public Use
  Company Number: 2005001277

PATIENT
  Age: 8 Year
  Sex: Female
  Weight: 24.2 kg

DRUGS (2)
  1. ERLOTINIB HCL (TABLET) (ERLOTINIB HCL) [Suspect]
     Indication: GLIOBLASTOMA
     Dosage: 75 MG (QD), ORAL
     Route: 048
     Dates: start: 20050616
  2. DEXAMETHASONE [Concomitant]

REACTIONS (2)
  - HYPOKALAEMIA [None]
  - HYPOPHOSPHATAEMIA [None]
